FAERS Safety Report 9111356 (Version 1)
Quarter: 2013Q1

REPORT INFORMATION
  Report Type: Spontaneous
  Country: US (occurrence: US)
  Receive Date: 20130219
  Receipt Date: 20130219
  Transmission Date: 20140127
  Serious: No
  Sender: FDA-Public Use
  Company Number: US-BRISTOL-MYERS SQUIBB COMPANY-16884017

PATIENT
  Age: 60 Year
  Sex: Female

DRUGS (1)
  1. ORENCIA [Suspect]
     Indication: RHEUMATOID ARTHRITIS
     Dosage: LAST INF ON:DEC11,FEB12,2MAY12, JUN12, INTERRUPTED ON:JUL12
     Route: 042
     Dates: start: 20100421

REACTIONS (4)
  - Blister [Recovered/Resolved]
  - Drug dose omission [Unknown]
  - Upper respiratory tract infection [Unknown]
  - Sinusitis [Unknown]
